FAERS Safety Report 16493372 (Version 1)
Quarter: 2019Q2

REPORT INFORMATION
  Report Type: Spontaneous
  Country: GB (occurrence: GB)
  Receive Date: 20190628
  Receipt Date: 20190628
  Transmission Date: 20190711
  Serious: Yes (Other)
  Sender: FDA-Public Use
  Company Number: GB-TEVA-2019-GB-1070125

PATIENT
  Age: 51 Year
  Sex: Female
  Weight: 61 kg

DRUGS (18)
  1. FORCEVAL [Concomitant]
     Active Substance: FOLIC ACID\IRON\MINERALS\VITAMINS
  2. CHLORPROMAZINE. [Concomitant]
     Active Substance: CHLORPROMAZINE
  3. CLINDAMYCIN. [Suspect]
     Active Substance: CLINDAMYCIN
     Dosage: 2400 MILLIGRAM DAILY;
     Route: 048
     Dates: start: 20190509, end: 20190513
  4. CEFTRIAXONE. [Suspect]
     Active Substance: CEFTRIAXONE
     Indication: PNEUMONIA
     Dosage: 2 GRAM DAILY;
     Route: 042
     Dates: start: 20190513, end: 20190516
  5. LANSOPRAZOLE. [Concomitant]
     Active Substance: LANSOPRAZOLE
  6. CASSIA [Concomitant]
  7. TINZAPARIN [Concomitant]
     Active Substance: TINZAPARIN
  8. PARACETAMOL [Concomitant]
     Active Substance: ACETAMINOPHEN
  9. MULTIVITAMIN [Concomitant]
     Active Substance: VITAMINS
  10. FOLIC ACID. [Concomitant]
     Active Substance: FOLIC ACID
  11. LACTULOSE. [Concomitant]
     Active Substance: LACTULOSE
  12. FLUDROCORTISONE [Concomitant]
     Active Substance: FLUDROCORTISONE
  13. HYDROCORTISONE. [Concomitant]
     Active Substance: HYDROCORTISONE
  14. ADCAL [Concomitant]
  15. QUININE [Concomitant]
     Active Substance: QUININE
  16. MORPHINE [Concomitant]
     Active Substance: MORPHINE
  17. PHOSPHATE SANDOZ EFFERVESCENT [Concomitant]
  18. AMITRIPTYLINE [Concomitant]
     Active Substance: AMITRIPTYLINE

REACTIONS (2)
  - Skin exfoliation [Not Recovered/Not Resolved]
  - Toxic epidermal necrolysis [Not Recovered/Not Resolved]

NARRATIVE: CASE EVENT DATE: 20190516
